FAERS Safety Report 6585589-9 (Version None)
Quarter: 2010Q1

REPORT INFORMATION
  Report Type: 
  Country: None (occurrence: None)
  Receive Date: 20100217
  Receipt Date: 20100201
  Transmission Date: 20100710
  Serious: Yes (Hospitalization, Other)
  Sender: FDA-Public Use
  Company Number: US-PFIZER INC-2010013017

PATIENT
  Age: 41 Year
  Sex: Male

DRUGS (2)
  1. SERTRALINE HCL [Suspect]
     Dosage: 200 MG, 1X/DAY
  2. ARIPIPRAZOLE [Suspect]
     Dosage: 20 MG, 1X/DAY

REACTIONS (1)
  - MYXOEDEMA COMA [None]
